FAERS Safety Report 10111064 (Version 1)
Quarter: 2014Q2

REPORT INFORMATION
  Report Type: Spontaneous
  Country: US (occurrence: None)
  Receive Date: 20140424
  Receipt Date: 20140424
  Transmission Date: 20141212
  Serious: Yes (Disabling, Other)
  Sender: FDA-Public Use
  Company Number: None

PATIENT
  Age: 43 Year
  Sex: Male
  Weight: 86.18 kg

DRUGS (7)
  1. DEPO MEDROL [Suspect]
     Indication: BACK PAIN
     Dosage: (2) 40 VIAL BOT 80MG. ?EPIDURAL CAUDE??PARTIAL INELIGIBLE
     Dates: start: 20140304, end: 20140304
  2. LISINOPRIL -HCTZ [Concomitant]
  3. HYDROCORDONE+PARACETAMOL (PARACETAMOL, HYDROCODONE) [Concomitant]
  4. FLORICET WITH CODIENE [Concomitant]
  5. ANTACIDS [Concomitant]
  6. PSYCHATISIT MEDS [Concomitant]
  7. B-COMPLEX [Concomitant]

REACTIONS (3)
  - Hallucination [None]
  - Pain [None]
  - Gait disturbance [None]
